FAERS Safety Report 18423926 (Version 1)
Quarter: 2020Q4

REPORT INFORMATION
  Report Type: Spontaneous
  Country: US (occurrence: US)
  Receive Date: 20201025
  Receipt Date: 20201025
  Transmission Date: 20210114
  Serious: Yes (Other)
  Sender: FDA-Public Use
  Company Number: NVSC2020US285405

PATIENT
  Age: 34 Year
  Sex: Male

DRUGS (4)
  1. NOREPINEPHRINE. [Suspect]
     Active Substance: NOREPINEPHRINE
     Indication: TOXIC SHOCK SYNDROME STREPTOCOCCAL
     Dosage: UNK(HIGH DOSE)
     Route: 065
  2. EPINEPHRINE HYDROGENTARTRATE [Suspect]
     Active Substance: EPINEPHRINE BITARTRATE
     Indication: TOXIC SHOCK SYNDROME STREPTOCOCCAL
     Dosage: UNK(HIGH DOSE)
     Route: 065
  3. VASOPRESSIN. [Suspect]
     Active Substance: VASOPRESSIN
     Indication: TOXIC SHOCK SYNDROME STREPTOCOCCAL
     Dosage: UNK(HIGH DOSE)
     Route: 065
  4. DOBUTAMINE [Suspect]
     Active Substance: DOBUTAMINE HYDROCHLORIDE
     Indication: TOXIC SHOCK SYNDROME STREPTOCOCCAL
     Dosage: UNK(HIGH DOSE)
     Route: 065

REACTIONS (4)
  - Rhabdomyolysis [Unknown]
  - Dry gangrene [Unknown]
  - Peripheral ischaemia [Unknown]
  - Drug ineffective for unapproved indication [Unknown]
